FAERS Safety Report 6651383-3 (Version None)
Quarter: 2010Q1

REPORT INFORMATION
  Report Type: 
  Country: None (occurrence: None)
  Receive Date: 20100325
  Receipt Date: 20100317
  Transmission Date: 20100710
  Serious: Yes (Hospitalization, Other)
  Sender: FDA-Public Use
  Company Number: US-BAXTER-2010BH004602

PATIENT
  Age: 67 Year
  Sex: Male
  Weight: 89 kg

DRUGS (17)
  1. GAMMAGARD LIQUID [Suspect]
     Indication: HYPOGAMMAGLOBULINAEMIA
     Route: 042
     Dates: start: 20061109, end: 20100221
  2. GAMMAGARD LIQUID [Suspect]
     Route: 042
     Dates: start: 20100222, end: 20100222
  3. ADVAIR DISKUS 100/50 [Concomitant]
     Indication: ASTHMA
     Route: 055
  4. SINGULAIR [Concomitant]
     Indication: ASTHMA
     Route: 048
  5. CLARITIN [Concomitant]
     Indication: HYPERSENSITIVITY
     Route: 048
  6. TYLENOL-500 [Concomitant]
     Indication: PREMEDICATION
     Dates: start: 20100222, end: 20100222
  7. DIPHENHYDRAMINE HYDROCHLORIDE [Concomitant]
     Indication: PREMEDICATION
     Dates: start: 20100222, end: 20100222
  8. ZANTAC [Concomitant]
     Indication: PREMEDICATION
     Dates: start: 20100222, end: 20100222
  9. NIACIN [Concomitant]
     Indication: BLOOD CHOLESTEROL INCREASED
     Route: 048
  10. ACETYLSALICYLIC ACID [Concomitant]
     Indication: ANTICOAGULANT THERAPY
     Route: 048
  11. FISH OIL [Concomitant]
     Indication: BLOOD CHOLESTEROL INCREASED
     Route: 048
  12. MAGNESIUM [Concomitant]
     Indication: MINERAL SUPPLEMENTATION
     Route: 048
  13. VITAMIN C [Concomitant]
  14. MULTIVITAMIN [Concomitant]
  15. SOLU-MEDROL [Concomitant]
     Indication: INFUSION
     Dates: start: 20100222, end: 20100222
  16. ZANTAC [Concomitant]
     Indication: INFUSION
     Dates: start: 20100222, end: 20100222
  17. DIPHENHYDRAMINE HYDROCHLORIDE [Concomitant]
     Indication: INFUSION
     Dates: start: 20100222, end: 20100222

REACTIONS (4)
  - CHILLS [None]
  - COUGH [None]
  - PYREXIA [None]
  - RHINORRHOEA [None]
